FAERS Safety Report 5484477-9 (Version None)
Quarter: 2007Q4

REPORT INFORMATION
  Report Type: 
  Country: None (occurrence: None)
  Receive Date: 20071009
  Receipt Date: 20070928
  Transmission Date: 20080405
  Serious: Yes (Other)
  Sender: FDA-Public Use
  Company Number: 2007332301

PATIENT
  Age: 6 Year
  Sex: Female
  Weight: 30.391 kg

DRUGS (1)
  1. LISTERINE (MENTHOL, METHYL SALICYLATE, EUCALYPTOL, THYMOL) [Suspect]
     Indication: ACCIDENTAL EXPOSURE
     Dosage: ORAL
     Route: 048
     Dates: start: 20070927, end: 20070927

REACTIONS (2)
  - ACCIDENTAL EXPOSURE [None]
  - BLOOD ALCOHOL INCREASED [None]
